FAERS Safety Report 7337052-5 (Version None)
Quarter: 2011Q1

REPORT INFORMATION
  Report Type: 
  Country: None (occurrence: None)
  Receive Date: 20110308
  Receipt Date: 20110225
  Transmission Date: 20110831
  Serious: Yes (Other)
  Sender: FDA-Public Use
  Company Number: US-BAYER-2011-018710

PATIENT
  Sex: Female

DRUGS (1)
  1. MIRENA [Suspect]
     Indication: CONTRACEPTION
     Dosage: DAILY DOSE 20 MCG/24HR
     Route: 015
     Dates: start: 20100401

REACTIONS (3)
  - DEVICE DISLOCATION [None]
  - GENITAL HAEMORRHAGE [None]
  - GENITAL PAIN [None]
